FAERS Safety Report 10042506 (Version 1)
Quarter: 2014Q1

REPORT INFORMATION
  Report Type: Spontaneous
  Country: FR (occurrence: FR)
  Receive Date: 20140327
  Receipt Date: 20140327
  Transmission Date: 20141002
  Serious: Yes (Other)
  Sender: FDA-Public Use
  Company Number: PHHY2014FR033590

PATIENT
  Age: 70 Year
  Sex: Male

DRUGS (1)
  1. DILTIAZEM SANDOZ [Suspect]

REACTIONS (4)
  - Medication error [Recovered/Resolved]
  - Incorrect drug administration rate [Recovered/Resolved]
  - Incorrect dose administered [Recovered/Resolved]
  - Wrong drug administered [Recovered/Resolved]
